FAERS Safety Report 18484631 (Version 1)
Quarter: 2020Q4

REPORT INFORMATION
  Report Type: Spontaneous
  Country: US (occurrence: US)
  Receive Date: 20201110
  Receipt Date: 20201110
  Transmission Date: 20210114
  Serious: Yes (Other)
  Sender: FDA-Public Use
  Company Number: US-FRESENIUS KABI-FK202011868

PATIENT
  Age: 2 Month
  Sex: Female

DRUGS (1)
  1. BUPIVACAINE W/EPINEPHRINE (MANUFACTURER UNKNOWN) [Suspect]
     Active Substance: BUPIVACAINE HYDROCHLORIDE\EPINEPHRINE
     Indication: SPINAL ANAESTHESIA
     Dosage: 0.5 PERCENT SUBARACHNOID BUPIVACAINE 3MG AND SUBARACHNOID EPINEPHRINE 1:200000
     Route: 065

REACTIONS (2)
  - Loss of consciousness [Recovered/Resolved]
  - Areflexia [Recovered/Resolved]
